FAERS Safety Report 4509304-5 (Version None)
Quarter: 2004Q4

REPORT INFORMATION
  Report Type: 
  Country: None (occurrence: None)
  Receive Date: 20041123
  Receipt Date: 20041116
  Transmission Date: 20050328
  Serious: Yes (Life-Threatening, Disabling)
  Sender: FDA-Public Use
  Company Number: US-MERCK-0411USA02845

PATIENT
  Age: 53 Year
  Sex: Female

DRUGS (6)
  1. VIOXX [Suspect]
     Indication: ARTHRITIS
     Route: 048
     Dates: start: 19990501, end: 20040901
  2. VIOXX [Suspect]
     Route: 048
  3. VIOXX [Suspect]
     Indication: PNEUMONIA
     Route: 048
     Dates: start: 19990501, end: 20040901
  4. VIOXX [Suspect]
     Route: 048
  5. PREDNISONE [Concomitant]
     Route: 065
  6. [THERAPY UNSPECIFIED] [Concomitant]
     Route: 065

REACTIONS (7)
  - BURNING SENSATION [None]
  - ERYTHEMA [None]
  - IMMUNE SYSTEM DISORDER [None]
  - ORAL MUCOSAL ERUPTION [None]
  - PAIN [None]
  - SWELLING [None]
  - TOOTH EXTRACTION [None]
